FAERS Safety Report 23821215 (Version 2)
Quarter: 2024Q2

REPORT INFORMATION
  Report Type: Spontaneous
  Country: US (occurrence: US)
  Receive Date: 20240506
  Receipt Date: 20240614
  Transmission Date: 20240716
  Serious: No
  Sender: FDA-Public Use
  Company Number: US-PFIZER INC-202400052408

PATIENT
  Age: 15 Year
  Sex: Male
  Weight: 52.154 kg

DRUGS (2)
  1. GENOTROPIN [Suspect]
     Active Substance: SOMATROPIN
     Indication: Growth hormone deficiency
     Dosage: 2.0MG DAILY
  2. GENOTROPIN [Suspect]
     Active Substance: SOMATROPIN
     Dosage: 2.0 MG, 1X/DAY

REACTIONS (4)
  - Incorrect dose administered by device [Unknown]
  - Drug dose omission by device [Unknown]
  - Device defective [Unknown]
  - Device delivery system issue [Unknown]
